FAERS Safety Report 4681615-2 (Version None)
Quarter: 2005Q2

REPORT INFORMATION
  Report Type: 
  Country: None (occurrence: None)
  Receive Date: 20050602
  Receipt Date: 20050520
  Transmission Date: 20051028
  Serious: Yes (Hospitalization, Other)
  Sender: FDA-Public Use
  Company Number: 2005077424

PATIENT
  Age: 13 Year
  Sex: Female
  Weight: 24 kg

DRUGS (10)
  1. VORICONAZOLE (VORICONAZOLE) [Suspect]
     Indication: ILL-DEFINED DISORDER
     Dosage: 200 MG (100 MG, Q12H INTERVAL: EVERY DAY), ORAL
     Route: 048
     Dates: start: 20050401
  2. PENTOXIFYLLINE (PENTOXIFLYLLINE) [Concomitant]
  3. POTASSIUM CHLORIDE [Concomitant]
  4. PREDNISONE TAB [Concomitant]
  5. TYLENOL [Concomitant]
  6. CODEINE SUL TAB [Concomitant]
  7. BENADRYL [Concomitant]
  8. MORPHINE [Concomitant]
  9. MAALOX (ALUMINIUM HYDROXIDE GEL, MAGNESIUM HYDROXIDE) [Concomitant]
  10. ZOFRAN [Concomitant]

REACTIONS (2)
  - BLOOD MAGNESIUM DECREASED [None]
  - VASCULITIS [None]
